FAERS Safety Report 6092627-9 (Version None)
Quarter: 2009Q1

REPORT INFORMATION
  Report Type: 
  Country: None (occurrence: None)
  Receive Date: 20090225
  Receipt Date: 20090219
  Transmission Date: 20090719
  Serious: Yes (Hospitalization, Other)
  Sender: FDA-Public Use
  Company Number: US-BAYER-200813817BCC

PATIENT
  Age: 97 Year
  Sex: Female
  Weight: 77 kg

DRUGS (1)
  1. ASPIRIN [Suspect]
     Indication: THROMBOSIS PROPHYLAXIS
     Dosage: UNIT DOSE: 325 MG
     Route: 048

REACTIONS (3)
  - BACTERIAL INFECTION [None]
  - COMA [None]
  - ISCHAEMIC STROKE [None]
